FAERS Safety Report 18973310 (Version 1)
Quarter: 2021Q1

REPORT INFORMATION
  Report Type: Spontaneous
  Country: US (occurrence: US)
  Receive Date: 20210305
  Receipt Date: 20210305
  Transmission Date: 20210420
  Serious: Yes (Life-Threatening, Hospitalization, Disabling)
  Sender: FDA-Public Use
  Company Number: None

PATIENT
  Age: 62 Year
  Sex: Female
  Weight: 60.75 kg

DRUGS (9)
  1. METHYLPHENIDATE 20 MG [Suspect]
     Active Substance: METHYLPHENIDATE
  2. PROBIOTIC [Concomitant]
     Active Substance: PROBIOTICS NOS
  3. PREGABALIN 75 MG [Suspect]
     Active Substance: PREGABALIN
     Indication: PAIN
     Dosage: ?          QUANTITY:1 CAPSULE(S);?
     Route: 048
     Dates: start: 20210302
  4. LISINOPRIL. [Concomitant]
     Active Substance: LISINOPRIL
  5. FLONASE NS [Concomitant]
  6. MOTRIN [Concomitant]
     Active Substance: IBUPROFEN
  7. ALLEGRA [Concomitant]
     Active Substance: FEXOFENADINE HYDROCHLORIDE
  8. DEXTROAMPHET SACCHARAT, AMPHET ASPARTATE, DEXTROAMPHET SULFATE AND AMPHET SULFAT [Concomitant]
     Active Substance: AMPHETAMINE ASPARTATE\AMPHETAMINE SULFATE\DEXTROAMPHETAMINE SACCHARATE\DEXTROAMPHETAMINE SULFATE
  9. ALPRAZOLAM. [Concomitant]
     Active Substance: ALPRAZOLAM

REACTIONS (7)
  - Irritability [None]
  - Peripheral coldness [None]
  - Product substitution issue [None]
  - Product quality issue [None]
  - Drug ineffective [None]
  - Aggression [None]
  - Somnolence [None]

NARRATIVE: CASE EVENT DATE: 20200612
